FAERS Safety Report 9163115 (Version 1)
Quarter: 2013Q1

REPORT INFORMATION
  Report Type: Spontaneous
  Country: SG (occurrence: SG)
  Receive Date: 20130314
  Receipt Date: 20130314
  Transmission Date: 20140127
  Serious: Yes (Other)
  Sender: FDA-Public Use
  Company Number: SG-BAXTER-2013BAX008974

PATIENT
  Age: 18 Year
  Sex: Male

DRUGS (13)
  1. STERILE WATER FOR IRRIGATION [Suspect]
     Indication: WOUND TREATMENT
  2. AERRANE [Suspect]
     Indication: GENERAL ANAESTHESIA
     Route: 055
  3. EPINEPHRINE [Suspect]
     Indication: PRODUCT USED FOR UNKNOWN INDICATION
  4. MIDAZOLAM [Suspect]
     Indication: PRODUCT USED FOR UNKNOWN INDICATION
     Route: 042
  5. FENTANYL [Suspect]
     Indication: PRODUCT USED FOR UNKNOWN INDICATION
     Route: 042
  6. PROPOFOL [Suspect]
     Indication: PRODUCT USED FOR UNKNOWN INDICATION
     Route: 042
  7. ATRACURIUM [Suspect]
     Indication: PRODUCT USED FOR UNKNOWN INDICATION
     Route: 042
  8. MORPHINE [Suspect]
     Indication: PRODUCT USED FOR UNKNOWN INDICATION
     Route: 042
  9. MORPHINE [Suspect]
     Route: 042
  10. CEFAZOLIN [Suspect]
     Indication: PRODUCT USED FOR UNKNOWN INDICATION
     Route: 042
  11. BUPIVACAINE [Suspect]
     Indication: NERVE BLOCK
     Route: 050
  12. DICLOFENAC [Suspect]
     Indication: PRODUCT USED FOR UNKNOWN INDICATION
     Route: 065
  13. DICLOFENAC [Suspect]
     Route: 048

REACTIONS (6)
  - Rhabdomyolysis [Recovered/Resolved]
  - Extravasation [Recovered/Resolved]
  - Renal failure acute [Recovered/Resolved]
  - Rash maculo-papular [Recovered/Resolved]
  - Hypersensitivity [None]
  - Blister [None]
